FAERS Safety Report 14717606 (Version 2)
Quarter: 2018Q2

REPORT INFORMATION
  Report Type: Spontaneous
  Country: US (occurrence: US)
  Receive Date: 20180404
  Receipt Date: 20180611
  Transmission Date: 20180711
  Serious: No
  Sender: FDA-Public Use
  Company Number: US-SA-2018SA017791

PATIENT
  Age: 45 Year
  Sex: Female

DRUGS (7)
  1. DUPIXENT [Suspect]
     Active Substance: DUPILUMAB
     Indication: ECZEMA
  2. RANITIDINE. [Concomitant]
     Active Substance: RANITIDINE
  3. EXCEDRIN [CAFFEINE;PARACETAMOL] [Concomitant]
  4. DUPIXENT [Suspect]
     Active Substance: DUPILUMAB
     Indication: PSORIASIS
     Dosage: 300 MG,QOW
     Route: 058
     Dates: start: 20180124
  5. ECHINACEA PURPUREA [Concomitant]
     Active Substance: ECHINACEA PURPUREA
  6. DUPIXENT [Suspect]
     Active Substance: DUPILUMAB
     Indication: DERMATITIS ATOPIC
     Dosage: 600 MG,1X
     Route: 058
     Dates: start: 20171201, end: 20171201
  7. CIMICIFUGA RACEMOSA [Concomitant]

REACTIONS (14)
  - Fatigue [Recovered/Resolved]
  - Injection site bruising [Recovered/Resolved]
  - Swelling face [Recovered/Resolved]
  - Injection site reaction [Not Recovered/Not Resolved]
  - Pain [Recovered/Resolved]
  - Blood blister [Not Recovered/Not Resolved]
  - Eye swelling [Not Recovered/Not Resolved]
  - Pruritus [Not Recovered/Not Resolved]
  - Dry eye [Not Recovered/Not Resolved]
  - Nausea [Recovered/Resolved]
  - Diarrhoea [Not Recovered/Not Resolved]
  - Tooth extraction [Recovered/Resolved]
  - Alveolar osteitis [Recovered/Resolved]
  - Hyperhidrosis [Recovered/Resolved]

NARRATIVE: CASE EVENT DATE: 201801
